FAERS Safety Report 8240175-X (Version None)
Quarter: 2012Q1

REPORT INFORMATION
  Report Type: 
  Country: None (occurrence: None)
  Receive Date: 20120328
  Receipt Date: 20110328
  Transmission Date: 20120608
  Serious: Yes (Other)
  Sender: FDA-Public Use
  Company Number: US-PFIZER INC-K201100355

PATIENT
  Sex: Male
  Weight: 104.31 kg

DRUGS (2)
  1. SKELAXIN [Suspect]
     Dosage: 800 MG, SINGLE
     Route: 048
     Dates: start: 20110328, end: 20110328
  2. SKELAXIN [Suspect]
     Indication: MUSCLE RELAXANT THERAPY
     Dosage: 800 MG, SINGLE
     Route: 048
     Dates: start: 20110204, end: 20110204

REACTIONS (7)
  - COUGH [None]
  - RHINORRHOEA [None]
  - DYSPNOEA [None]
  - PRURITUS GENERALISED [None]
  - PHARYNGEAL OEDEMA [None]
  - HYPERSENSITIVITY [None]
  - OCULAR HYPERAEMIA [None]
